FAERS Safety Report 22920960 (Version 5)
Quarter: 2024Q2

REPORT INFORMATION
  Report Type: Spontaneous
  Country: CA (occurrence: CA)
  Receive Date: 20230908
  Receipt Date: 20240509
  Transmission Date: 20240716
  Serious: Yes (Other)
  Sender: FDA-Public Use
  Company Number: CA-CELLTRION INC.-2023CA016918

PATIENT

DRUGS (16)
  1. INFLECTRA [Suspect]
     Active Substance: INFLIXIMAB-DYYB
     Indication: Crohn^s disease
     Dosage: 300 MG, WEEKS 0,2,6 AND EVERY 8 WEEKS
     Route: 042
     Dates: start: 20230612
  2. INFLECTRA [Suspect]
     Active Substance: INFLIXIMAB-DYYB
     Dosage: 300 MG, AFTER 2 WEEKS (W2)
     Route: 042
     Dates: start: 20230626
  3. INFLECTRA [Suspect]
     Active Substance: INFLIXIMAB-DYYB
     Dosage: 300 MG, WEEK 6 INDUCTION DOSE
     Route: 042
     Dates: start: 20230724
  4. INFLECTRA [Suspect]
     Active Substance: INFLIXIMAB-DYYB
     Dosage: 300 MG, WEEK 6 INDUCTION DOSE (WEEKS 0,2,6 AND EVERY 8 WEEKS)
     Route: 042
     Dates: start: 20230918
  5. INFLECTRA [Suspect]
     Active Substance: INFLIXIMAB-DYYB
     Dosage: 10 MG/KG EVERY 8 WEEKS, FIXED DOSE 600MG (600 MG, 8 WEEKS)
     Route: 042
     Dates: start: 20231113
  6. INFLECTRA [Suspect]
     Active Substance: INFLIXIMAB-DYYB
     Dosage: 10 MG/KG, EVERY 8 WEEK (FIXED DOSE 600 MG)(600 MG, AFTER 8 WEEKS AND 1 DAY)
     Route: 042
     Dates: start: 20240109
  7. INFLECTRA [Suspect]
     Active Substance: INFLIXIMAB-DYYB
     Dosage: 10 MG/KG EVERY 8 WEEKS, FIXED DOSE 600MG
     Route: 042
     Dates: start: 20240304
  8. INFLECTRA [Suspect]
     Active Substance: INFLIXIMAB-DYYB
     Dosage: 10 MG/KG EVERY 8 WEEKS, FIXED DOSE 600MG (600 MG, 8 WEEKS)
     Route: 042
     Dates: start: 20240430
  9. AERIUS (DESLORATADINE) [Concomitant]
     Active Substance: DESLORATADINE
     Dosage: 1 DF
     Route: 045
  10. BETAHISTINE [Concomitant]
     Active Substance: BETAHISTINE
     Dosage: 16 MG
     Route: 048
  11. CANDESARTAN [Concomitant]
     Active Substance: CANDESARTAN
     Dosage: 8 MG
     Route: 048
  12. DIOVOL [DONEPEZIL HYDROCHLORIDE] [Concomitant]
     Dosage: UNK
  13. LUMIGAN [Concomitant]
     Active Substance: BIMATOPROST
     Dosage: 1 DF
     Route: 050
  14. PANTOPRAZOLE [Concomitant]
     Active Substance: PANTOPRAZOLE
     Dosage: 40 MG
     Route: 048
  15. PREDNISONE [Concomitant]
     Active Substance: PREDNISONE
     Dosage: UNK
  16. PROLIA [Concomitant]
     Active Substance: DENOSUMAB
     Dosage: 60 MG
     Route: 058

REACTIONS (10)
  - Cataract [Unknown]
  - Drug level below therapeutic [Unknown]
  - Limb mass [Unknown]
  - Inflammation [Unknown]
  - Skin warm [Unknown]
  - Gait disturbance [Unknown]
  - Skin laceration [Recovered/Resolved]
  - Erythema nodosum [Recovered/Resolved]
  - Condition aggravated [Recovering/Resolving]
  - Arthralgia [Recovered/Resolved]

NARRATIVE: CASE EVENT DATE: 20230101
